FAERS Safety Report 15631369 (Version 4)
Quarter: 2021Q2

REPORT INFORMATION
  Report Type: Report from Study
  Country: None (occurrence: DE)
  Receive Date: 20181119
  Receipt Date: 20210607
  Transmission Date: 20210716
  Serious: Yes (Hospitalization, Other)
  Sender: FDA-Public Use
  Company Number: DE-ABBVIE-18K-062-2555995-00

PATIENT
  Age: 38 Year
  Sex: Female
  Weight: 100 kg

DRUGS (4)
  1. PANTOZOL [Concomitant]
     Active Substance: PANTOPRAZOLE SODIUM
     Indication: PRODUCT USED FOR UNKNOWN INDICATION
     Dates: start: 20190716
  2. HUMIRA [Suspect]
     Active Substance: ADALIMUMAB
     Indication: PSORIATIC ARTHROPATHY
     Route: 058
     Dates: start: 20170302
  3. SUCRABEST [Concomitant]
     Active Substance: SUCRALFATE
     Indication: PRODUCT USED FOR UNKNOWN INDICATION
     Dates: start: 20190716
  4. VENLAFAXIN [Concomitant]
     Active Substance: VENLAFAXINE HYDROCHLORIDE
     Indication: PRODUCT USED FOR UNKNOWN INDICATION

REACTIONS (9)
  - Gastric ulcer [Unknown]
  - Hiatus hernia [Recovered/Resolved]
  - Iron deficiency anaemia [Recovered/Resolved]
  - Obesity [Unknown]
  - Hiatus hernia [Recovered/Resolved]
  - Postoperative adhesion [Recovered/Resolved]
  - Gastrooesophageal reflux disease [Recovered/Resolved]
  - Cholelithiasis [Recovered/Resolved]
  - Anastomotic ulcer [Recovered/Resolved]

NARRATIVE: CASE EVENT DATE: 2018
